FAERS Safety Report 6439605-5 (Version None)
Quarter: 2009Q4

REPORT INFORMATION
  Report Type: 
  Country: None (occurrence: None)
  Receive Date: 20091113
  Receipt Date: 20091106
  Transmission Date: 20100525
  Serious: Yes (Other)
  Sender: FDA-Public Use
  Company Number: B0603606A

PATIENT
  Age: 66 Year
  Sex: Female

DRUGS (1)
  1. CHLORAMBUCIL [Suspect]
     Route: 065

REACTIONS (8)
  - CENTRAL NERVOUS SYSTEM LESION [None]
  - CEREBELLAR SYNDROME [None]
  - DYSARTHRIA [None]
  - DYSTONIA [None]
  - GENERAL PHYSICAL HEALTH DETERIORATION [None]
  - HYPOAESTHESIA [None]
  - IMMUNOSUPPRESSION [None]
  - PROGRESSIVE MULTIFOCAL LEUKOENCEPHALOPATHY [None]
